FAERS Safety Report 4555614-5 (Version None)
Quarter: 2005Q1

REPORT INFORMATION
  Report Type: 
  Country: None (occurrence: None)
  Receive Date: 20050118
  Receipt Date: 20050118
  Transmission Date: 20050727
  Serious: Yes (Other)
  Sender: FDA-Public Use
  Company Number: None

PATIENT
  Age: 39 Year
  Sex: Female

DRUGS (1)
  1. SPIRONOLACTONE [Suspect]
     Indication: ACNE CYSTIC
     Dosage: ONE TABLET BY MOUTH TWICE DAILY
     Route: 048
     Dates: start: 20041105

REACTIONS (2)
  - CONDITION AGGRAVATED [None]
  - RASH [None]
